FAERS Safety Report 6077685-X (Version None)
Quarter: 2009Q1

REPORT INFORMATION
  Report Type: 
  Country: None (occurrence: None)
  Receive Date: 20090213
  Receipt Date: 20090205
  Transmission Date: 20090719
  Serious: Yes (Disabling)
  Sender: FDA-Public Use
  Company Number: DE-ROCHE-595824

PATIENT
  Sex: Female
  Weight: 67 kg

DRUGS (4)
  1. BONIVA [Suspect]
     Indication: OSTEOPOROSIS
     Route: 048
     Dates: start: 20060601, end: 20080901
  2. ACTONEL [Concomitant]
     Indication: OSTEOPOROSIS
     Dates: start: 20050701, end: 20060601
  3. GYNOKADIN [Concomitant]
     Indication: OSTEOPOROSIS
     Dates: start: 19980101
  4. CALCIMAGON-D3 [Concomitant]
     Indication: OSTEOPOROSIS
     Dosage: DOSING AMOUNT 1000MG CALCIUM CARBONATE / 800IU COLECALCIFEROL
     Route: 048
     Dates: start: 20030101

REACTIONS (3)
  - DUPUYTREN'S CONTRACTURE [None]
  - FIBROMATOSIS [None]
  - LOWER LIMB FRACTURE [None]
